FAERS Safety Report 7117257-9 (Version None)
Quarter: 2010Q4

REPORT INFORMATION
  Report Type: 
  Country: None (occurrence: None)
  Receive Date: 20101112
  Receipt Date: 20101028
  Transmission Date: 20110411
  Serious: Yes (Hospitalization)
  Sender: FDA-Public Use
  Company Number: AUR-APL-2010-02704

PATIENT
  Sex: Female

DRUGS (5)
  1. METFORMIN [Suspect]
     Dosage: 2G - DAILY - ORAL
     Route: 048
  2. GLICLAZIDE [Concomitant]
  3. INSULIN GLARGINE [Concomitant]
  4. INSULIN GLULISINE [Concomitant]
  5. SIMVASTATIN [Concomitant]

REACTIONS (1)
  - METABOLIC ACIDOSIS [None]
